FAERS Safety Report 10748327 (Version 2)
Quarter: 2015Q2

REPORT INFORMATION
  Report Type: Report from Study
  Country: DE (occurrence: DE)
  Receive Date: 20150129
  Receipt Date: 20150403
  Transmission Date: 20150821
  Serious: Yes (Hospitalization)
  Sender: FDA-Public Use
  Company Number: DE-TEVA-535942GER

PATIENT
  Age: 60 Year
  Sex: Female
  Weight: 51 kg

DRUGS (4)
  1. GRANISETRON [Concomitant]
     Active Substance: GRANISETRON
     Dosage: 1 MILLIGRAM DAILY;
     Dates: start: 20141009, end: 20141227
  2. CARBOPLATIN-GRY 10 MG/ML [Suspect]
     Active Substance: CARBOPLATIN
     Indication: BREAST CANCER FEMALE
     Dosage: 209 MILIGRAM ON DAY 1 AND 8; LAST DOSE PRIOR TO THE SAE: 27-DEC-2014
     Route: 042
     Dates: start: 20141009
  3. ABRAXANE [Suspect]
     Active Substance: PACLITAXEL
     Indication: BREAST CANCER FEMALE
     Dosage: 151 MILIGRAM ON DAY 1 AND 8; LAST DOSE PRIOR TO THE SAE: 27-DEC-2014
     Route: 042
     Dates: start: 20141009
  4. DEXAMETHASON [Concomitant]
     Active Substance: DEXAMETHASONE
     Dosage: 8 MILLIGRAM DAILY;
     Dates: start: 20141009, end: 20141227

REACTIONS (1)
  - Infection [Recovered/Resolved]

NARRATIVE: CASE EVENT DATE: 20150117
